FAERS Safety Report 23882422 (Version 2)
Quarter: 2024Q2

REPORT INFORMATION
  Report Type: Spontaneous
  Country: EG (occurrence: EG)
  Receive Date: 20240522
  Receipt Date: 20240531
  Transmission Date: 20240716
  Serious: Yes (Life-Threatening, Hospitalization)
  Sender: FDA-Public Use
  Company Number: EG-NOVOPROD-1221773

PATIENT
  Age: 854 Month
  Sex: Male

DRUGS (7)
  1. ASPIRIN [Concomitant]
     Active Substance: ASPIRIN
     Indication: Anticoagulant therapy
     Dosage: 75 MG, QD(1 TABLET DAILY)
     Route: 048
  2. VILDAGLIPTIN [Concomitant]
     Active Substance: VILDAGLIPTIN
     Indication: Diabetes mellitus
     Dosage: 1 TABLET AFTER LUNCH
     Route: 048
  3. LUCIDRIL [SILDENAFIL CITRATE] [Concomitant]
     Indication: Cerebrovascular disorder
     Dosage: 1 TABLET DAILY
     Route: 048
  4. INSULIN HUMAN [Suspect]
     Active Substance: INSULIN HUMAN
     Indication: Diabetes mellitus
     Dosage: 80 IU, QD (50 U MORNING, 30 U NIGHT)
     Route: 058
     Dates: start: 2012
  5. INSULIN HUMAN [Suspect]
     Active Substance: INSULIN HUMAN
     Dosage: 30 IU (IN THE HOSPITAL)
     Route: 058
  6. BRAIN OX [Concomitant]
     Indication: Cerebrovascular disorder
     Dosage: 1TABLET DAILY
     Route: 048
  7. FORFLOZIN PLUS [Concomitant]
     Indication: Diabetes mellitus
     Dosage: 1TABLET DAILY AT MORNING
     Route: 048

REACTIONS (3)
  - Road traffic accident [Recovered/Resolved with Sequelae]
  - Shoulder fracture [Recovered/Resolved with Sequelae]
  - Pelvic fracture [Recovered/Resolved with Sequelae]

NARRATIVE: CASE EVENT DATE: 20231101
